FAERS Safety Report 6531679-6 (Version None)
Quarter: 2010Q1

REPORT INFORMATION
  Report Type: 
  Country: None (occurrence: None)
  Receive Date: 20100107
  Receipt Date: 20100107
  Transmission Date: 20100710
  Serious: Yes (Hospitalization)
  Sender: FDA-Public Use
  Company Number: None

PATIENT
  Age: 49 Year
  Sex: Male
  Weight: 63.5 kg

DRUGS (6)
  1. VANCOMYCIN [Suspect]
     Indication: BETA HAEMOLYTIC STREPTOCOCCAL INFECTION
     Dosage: 1.5 GM BID IV
     Route: 042
     Dates: start: 20090912, end: 20091007
  2. VANCOMYCIN [Suspect]
     Indication: BLOOD DISORDER
     Dosage: 1.5 GM BID IV
     Route: 042
     Dates: start: 20090912, end: 20091007
  3. VANCOMYCIN [Suspect]
     Indication: ENTEROBACTER INFECTION
     Dosage: 1.5 GM BID IV
     Route: 042
     Dates: start: 20090912, end: 20091007
  4. VANCOMYCIN [Suspect]
     Indication: PSEUDOMONAS INFECTION
     Dosage: 1.5 GM BID IV
     Route: 042
     Dates: start: 20090912, end: 20091007
  5. VANCOMYCIN [Suspect]
     Indication: STAPHYLOCOCCAL INFECTION
     Dosage: 1.5 GM BID IV
     Route: 042
     Dates: start: 20090912, end: 20091007
  6. PIPERACILLIN AND TAZOBACTAM [Suspect]
     Indication: BLOOD DISORDER
     Dosage: 4.5 GM QID IV
     Route: 042
     Dates: start: 20090910, end: 20091007

REACTIONS (6)
  - ABASIA [None]
  - INAPPROPRIATE SCHEDULE OF DRUG ADMINISTRATION [None]
  - INCORRECT DOSE ADMINISTERED [None]
  - RENAL FAILURE ACUTE [None]
  - RENAL TUBULAR NECROSIS [None]
  - THERAPEUTIC AGENT TOXICITY [None]
